FAERS Safety Report 9120954 (Version 2)
Quarter: 2013Q2

REPORT INFORMATION
  Report Type: Report from Study
  Country: FR (occurrence: FR)
  Receive Date: 20130226
  Receipt Date: 20130405
  Transmission Date: 20140414
  Serious: Yes (Death, Hospitalization)
  Sender: FDA-Public Use
  Company Number: FR-BAYER-2013-003781

PATIENT
  Age: 88 Year
  Sex: Male
  Weight: 73 kg

DRUGS (3)
  1. REGORAFENIB [Suspect]
     Indication: COLORECTAL CANCER METASTATIC
     Dosage: 160 MG, UNK
     Route: 048
     Dates: start: 20121115, end: 20130102
  2. COTAREG [Concomitant]
     Indication: HYPERTENSION
     Dosage: DAILY DOSE 160 MG
     Route: 048
     Dates: end: 20121202
  3. EXFORGE [Concomitant]
     Indication: HYPERTENSION
     Dosage: DAILY DOSE 5 MG
     Route: 048
     Dates: start: 20121203

REACTIONS (2)
  - General physical health deterioration [Fatal]
  - Pneumonia viral [Recovered/Resolved]
